FAERS Safety Report 16931947 (Version 2)
Quarter: 2025Q2

REPORT INFORMATION
  Report Type: Spontaneous
  Country: DE (occurrence: DE)
  Receive Date: 20191017
  Receipt Date: 20250409
  Transmission Date: 20250717
  Serious: Yes (Hospitalization, Other)
  Sender: BAUSCH AND LOMB
  Company Number: DE-STADA-187655

PATIENT
  Age: 89 Year
  Sex: Female

DRUGS (15)
  1. LORAZEPAM [Suspect]
     Active Substance: LORAZEPAM
     Indication: Depression
     Route: 065
  2. CITALOPRAM [Suspect]
     Active Substance: CITALOPRAM
     Indication: Depression
     Route: 065
  3. CITALOPRAM [Suspect]
     Active Substance: CITALOPRAM
     Route: 065
  4. MIRTAZAPINE [Suspect]
     Active Substance: MIRTAZAPINE
     Indication: Depression
     Route: 065
  5. MIRTAZAPINE [Suspect]
     Active Substance: MIRTAZAPINE
     Route: 065
     Dates: start: 2016
  6. TOLPERISONE HYDROCHLORIDE [Suspect]
     Active Substance: TOLPERISONE HYDROCHLORIDE
     Indication: Spondylitis
     Route: 048
  7. QUETIAPINE FUMARATE [Suspect]
     Active Substance: QUETIAPINE FUMARATE
     Indication: Depression
     Route: 065
     Dates: start: 201512
  8. QUETIAPINE FUMARATE [Suspect]
     Active Substance: QUETIAPINE FUMARATE
     Route: 065
     Dates: start: 2016
  9. FOSFOMYCIN TROMETHAMINE [Concomitant]
     Active Substance: FOSFOMYCIN TROMETHAMINE
     Indication: Escherichia infection
     Dosage: SINGLE DOSE OF 3 G
     Dates: start: 201512
  10. OXYCONTIN [Concomitant]
     Active Substance: OXYCODONE HYDROCHLORIDE
     Indication: Pain
     Dates: start: 201512
  11. NOVALGIN [Concomitant]
     Indication: Spondylitis
     Dates: start: 201512
  12. DAFALGAN [Concomitant]
     Active Substance: ACETAMINOPHEN
     Indication: Spondylitis
     Route: 042
     Dates: start: 201512
  13. MAGNESIUM; POTASSIUM [Concomitant]
     Indication: Hypokalaemia
     Dates: start: 201512
  14. FENTANYL [Concomitant]
     Active Substance: FENTANYL
     Indication: Pain
  15. MEPERIDINE [Concomitant]
     Active Substance: MEPERIDINE
     Indication: Spondylitis

REACTIONS (1)
  - Serotonin syndrome [Recovering/Resolving]

NARRATIVE: CASE EVENT DATE: 20151201
